FAERS Safety Report 18876037 (Version 1)
Quarter: 2021Q1

REPORT INFORMATION
  Report Type: Report from Study
  Country: None (occurrence: TW)
  Receive Date: 20210210
  Receipt Date: 20210210
  Transmission Date: 20210420
  Serious: Yes (Other)
  Sender: FDA-Public Use
  Company Number: TW-BAUSCH-BL-2021-003894

PATIENT
  Age: 84 Year
  Sex: Female

DRUGS (2)
  1. ACYCLOVIR. [Concomitant]
     Active Substance: ACYCLOVIR
     Indication: OPHTHALMIC HERPES SIMPLEX
     Route: 048
  2. PREDNISOLONE ACETATE. [Suspect]
     Active Substance: PREDNISOLONE ACETATE
     Indication: OPHTHALMIC HERPES SIMPLEX
     Route: 061

REACTIONS (2)
  - Burkholderia cepacia complex infection [Recovered/Resolved with Sequelae]
  - Keratitis bacterial [Recovered/Resolved with Sequelae]

NARRATIVE: CASE EVENT DATE: 2018
